FAERS Safety Report 6460869-6 (Version None)
Quarter: 2009Q4

REPORT INFORMATION
  Report Type: 
  Country: None (occurrence: None)
  Receive Date: 20091125
  Receipt Date: 20091125
  Transmission Date: 20100525
  Serious: No
  Sender: FDA-Public Use
  Company Number: None

PATIENT
  Age: 54 Year
  Sex: Female
  Weight: 87.9978 kg

DRUGS (2)
  1. GLEEVEC [Suspect]
     Indication: CHROMOSOME ANALYSIS ABNORMAL
     Dosage: 600 MG 1 X PER DAY PO
     Route: 048
     Dates: start: 20060923, end: 20091124
  2. GLEEVEC [Suspect]
     Indication: CHRONIC MYELOID LEUKAEMIA
     Dosage: 600 MG 1 X PER DAY PO
     Route: 048
     Dates: start: 20060923, end: 20091124

REACTIONS (3)
  - BLEPHAROSPASM [None]
  - FACIAL PALSY [None]
  - MUSCLE SPASMS [None]
